FAERS Safety Report 18299008 (Version 1)
Quarter: 2020Q3

REPORT INFORMATION
  Report Type: Other
  Country: JP (occurrence: JP)
  Receive Date: 20200923
  Receipt Date: 20200923
  Transmission Date: 20201103
  Serious: Yes (Hospitalization, Other)
  Sender: FDA-Public Use
  Company Number: JP-ROCHE-2680102

PATIENT
  Age: 11 Year
  Sex: Male
  Weight: 50.9 kg

DRUGS (6)
  1. NEORAL [Concomitant]
     Active Substance: CYCLOSPORINE
     Dates: start: 20160226
  2. CYCLOPHOSPHAMIDE HYDRATE [Concomitant]
     Active Substance: CYCLOPHOSPHAMIDE
  3. MIZORIBINE [Concomitant]
     Active Substance: MIZORIBINE
  4. RITUXIMAB. [Suspect]
     Active Substance: RITUXIMAB
     Indication: NEPHROTIC SYNDROME
     Dosage: SUBSEQUENT DOSE ON 21/AUG/2013, 11/JUL/2018, 12/JUL/2019
     Route: 041
     Dates: start: 201001, end: 201001
  5. RITUXIMAB. [Suspect]
     Active Substance: RITUXIMAB
     Dosage: SUBSEQUENT DOSE ON 12/NOV/2015, 19/NOV/2015, 26/NOV/2015, 02/JUN/2017, 15/JUN/2017, 22/JUN/2017, 29/
     Route: 041
     Dates: start: 20151105, end: 20151105
  6. NEORAL [Concomitant]
     Active Substance: CYCLOSPORINE
     Dates: start: 20160225

REACTIONS (5)
  - Pharyngitis [Unknown]
  - Product use in unapproved indication [Unknown]
  - Hypogammaglobulinaemia [Not Recovered/Not Resolved]
  - Agranulocytosis [Recovered/Resolved]
  - Off label use [Unknown]

NARRATIVE: CASE EVENT DATE: 201903
